FAERS Safety Report 21075619 (Version 1)
Quarter: 2022Q3

REPORT INFORMATION
  Report Type: Spontaneous
  Country: US (occurrence: None)
  Receive Date: 20220712
  Receipt Date: 20220712
  Transmission Date: 20221027
  Serious: Yes (Disabling)
  Sender: FDA-Public Use
  Company Number: None

PATIENT
  Age: 48 Year
  Sex: Female
  Weight: 68.4 kg

DRUGS (11)
  1. PALIPERIDONE PALMITATE [Suspect]
     Active Substance: PALIPERIDONE PALMITATE
     Indication: Schizophrenia
     Dosage: OTHER QUANTITY : 1 INJECTION(S);?OTHER FREQUENCY : EACH MONTH;?
     Route: 058
  2. PALIPERIDONE [Suspect]
     Active Substance: PALIPERIDONE
     Indication: Schizophrenia
     Dosage: OTHER QUANTITY : 1 TABLET(S);?FREQUENCY : DAILY;?
     Route: 048
  3. Blood pressure monitor [Concomitant]
  4. Blood glucose monitor [Concomitant]
  5. Parafen moist heat treatment (Waxwell) [Concomitant]
  6. VITAMIN E [Concomitant]
     Active Substance: .ALPHA.-TOCOPHEROL
  7. IRON [Concomitant]
     Active Substance: IRON
  8. SENNA [Concomitant]
     Active Substance: SENNA LEAF\SENNOSIDES\SENNOSIDES A AND B
  9. COLACE [Concomitant]
     Active Substance: DOCUSATE SODIUM
  10. Pain Relieving Cream (Menthol) [Concomitant]
  11. Lubrication PM Ointment for eyes [Concomitant]

REACTIONS (30)
  - Arthralgia [None]
  - Drooling [None]
  - Dysarthria [None]
  - Photophobia [None]
  - Gait disturbance [None]
  - Muscle twitching [None]
  - Lymphadenopathy [None]
  - Temporomandibular joint syndrome [None]
  - Breast necrosis [None]
  - Diabetes mellitus [None]
  - Palpitations [None]
  - Prehypertension [None]
  - Uterine leiomyoma [None]
  - Pain in extremity [None]
  - Skin disorder [None]
  - Mastitis [None]
  - Cyst [None]
  - Pleurisy [None]
  - Dysphagia [None]
  - Clumsiness [None]
  - Neck pain [None]
  - Headache [None]
  - Paraesthesia [None]
  - Gait disturbance [None]
  - Paraesthesia [None]
  - Deafness [None]
  - Blood cholesterol increased [None]
  - Thyroid disorder [None]
  - Angina pectoris [None]
  - Defaecation disorder [None]

NARRATIVE: CASE EVENT DATE: 20200201
